FAERS Safety Report 8320299-9 (Version None)
Quarter: 2012Q2

REPORT INFORMATION
  Report Type: 
  Country: None (occurrence: None)
  Receive Date: 20120430
  Receipt Date: 20120427
  Transmission Date: 20120825
  Serious: No
  Sender: FDA-Public Use
  Company Number: US-PFIZER INC-2012105007

PATIENT
  Sex: Female
  Weight: 63.5 kg

DRUGS (7)
  1. XANAX [Suspect]
     Indication: STRESS
     Dosage: 1 MG, 3X/DAY
     Dates: start: 20040101
  2. NEURONTIN [Concomitant]
  3. NEURONTIN [Concomitant]
     Indication: MUSCULOSKELETAL DISCOMFORT
     Dosage: 300 MG, 2X/DAY
  4. MULTI-VITAMINS [Concomitant]
     Dosage: UNK
  5. CHANTIX [Suspect]
     Dosage: UNK
  6. CHANTIX [Suspect]
     Indication: SMOKING CESSATION THERAPY
     Dosage: UNK
     Dates: start: 20080101
  7. CHANTIX [Suspect]
     Dosage: UNK
     Dates: start: 20110101, end: 20110101

REACTIONS (2)
  - STRESS [None]
  - NAUSEA [None]
